FAERS Safety Report 17462653 (Version 1)
Quarter: 2020Q1

REPORT INFORMATION
  Report Type: Spontaneous
  Country: ES (occurrence: ES)
  Receive Date: 20200226
  Receipt Date: 20200226
  Transmission Date: 20200409
  Serious: Yes (Hospitalization, Other)
  Sender: FDA-Public Use
  Company Number: ES-DRREDDYS-GER/SPN/20/0119909

PATIENT
  Age: 46 Year
  Sex: Female

DRUGS (2)
  1. IMATINIB. [Suspect]
     Active Substance: IMATINIB MESYLATE
     Indication: HYPEREOSINOPHILIC SYNDROME
     Route: 065
  2. METILPREDNISOLONA [Suspect]
     Active Substance: METHYLPREDNISOLONE
     Indication: HYPEREOSINOPHILIC SYNDROME
     Dosage: 1 MG/KG/DAY
     Route: 065

REACTIONS (8)
  - Left ventricular dysfunction [Recovering/Resolving]
  - Cardiac ventricular thrombosis [Recovering/Resolving]
  - Thrombocytopenia [Recovering/Resolving]
  - Surgery [Recovering/Resolving]
  - Anaemia [Recovering/Resolving]
  - Intracardiac mass [Recovering/Resolving]
  - Electrocardiogram ST-T segment abnormal [Recovering/Resolving]
  - Pancreatic enzymes increased [Recovering/Resolving]

NARRATIVE: CASE EVENT DATE: 200810
